FAERS Safety Report 5398218-7 (Version None)
Quarter: 2007Q3

REPORT INFORMATION
  Report Type: 
  Country: None (occurrence: None)
  Receive Date: 20070726
  Receipt Date: 20070716
  Transmission Date: 20080115
  Serious: Yes (Other)
  Sender: FDA-Public Use
  Company Number: US-PFIZER INC-2007058751

PATIENT
  Sex: Male
  Weight: 100 kg

DRUGS (3)
  1. SUTENT [Suspect]
     Indication: RENAL CELL CARCINOMA STAGE UNSPECIFIED
  2. ZANTAC 150 [Concomitant]
  3. LASIX [Concomitant]

REACTIONS (8)
  - APPENDICECTOMY [None]
  - CARDIAC FAILURE [None]
  - CARDIOMYOPATHY [None]
  - DYSPNOEA [None]
  - EJECTION FRACTION DECREASED [None]
  - HYPERTRIGLYCERIDAEMIA [None]
  - MALIGNANT MELANOMA [None]
  - OEDEMA PERIPHERAL [None]
